FAERS Safety Report 4523059-X (Version None)
Quarter: 2004Q4

REPORT INFORMATION
  Report Type: 
  Country: None (occurrence: None)
  Receive Date: 20041208
  Receipt Date: 20041126
  Transmission Date: 20050328
  Serious: Yes (Life-Threatening, Hospitalization)
  Sender: FDA-Public Use
  Company Number: 2004242158IS

PATIENT
  Sex: Male

DRUGS (4)
  1. SALAZOPYRIN EN TABLETS        (SULFASALAZINE) [Suspect]
     Indication: PSORIASIS
     Dosage: 2 GRAMS/DAY (500 MG), ORAL
     Route: 048
     Dates: start: 20020326, end: 20020511
  2. SOTALOL HCL [Concomitant]
  3. AMLODIPINE [Concomitant]
  4. OMEPRAZOLE [Concomitant]

REACTIONS (6)
  - ALOPECIA [None]
  - FEELING ABNORMAL [None]
  - INFLUENZA LIKE ILLNESS [None]
  - LETHARGY [None]
  - URINARY RETENTION [None]
  - WHITE BLOOD CELL COUNT DECREASED [None]
